FAERS Safety Report 6231341-3 (Version None)
Quarter: 2009Q2

REPORT INFORMATION
  Report Type: 
  Country: None (occurrence: None)
  Receive Date: 20090616
  Receipt Date: 20090601
  Transmission Date: 20091009
  Serious: Yes (Other)
  Sender: FDA-Public Use
  Company Number: US-GENENTECH-284614

PATIENT

DRUGS (2)
  1. RITUXIMAB [Suspect]
     Indication: NON-HODGKIN'S LYMPHOMA
     Dosage: 375 MG/M2, UNK
     Route: 065
  2. BORTEZOMIB [Suspect]
     Indication: NON-HODGKIN'S LYMPHOMA
     Route: 065

REACTIONS (12)
  - DIARRHOEA [None]
  - FATIGUE [None]
  - ILEUS [None]
  - MALIGNANT NEOPLASM PROGRESSION [None]
  - MYOSITIS [None]
  - NEUROTOXICITY [None]
  - NEUTROPENIA [None]
  - ORTHOSTATIC HYPOTENSION [None]
  - PERIPHERAL MOTOR NEUROPATHY [None]
  - PERIPHERAL SENSORY NEUROPATHY [None]
  - RASH [None]
  - THROMBOCYTOPENIA [None]
